FAERS Safety Report 9912766 (Version 1)
Quarter: 2014Q1

REPORT INFORMATION
  Report Type: Spontaneous
  Country: US (occurrence: US)
  Receive Date: 20140220
  Receipt Date: 20140220
  Transmission Date: 20141002
  Serious: No
  Sender: FDA-Public Use
  Company Number: US-PFIZER INC-2014046552

PATIENT
  Age: 35 Year
  Sex: Female
  Weight: 90.7 kg

DRUGS (1)
  1. DEPO-PROVERA [Suspect]
     Dosage: UNK, EVERY 3 MONTHS
     Dates: start: 2004

REACTIONS (1)
  - Joint injury [Unknown]
